FAERS Safety Report 6237314-9 (Version None)
Quarter: 2009Q2

REPORT INFORMATION
  Report Type: 
  Country: None (occurrence: None)
  Receive Date: 20090619
  Receipt Date: 20090612
  Transmission Date: 20091009
  Serious: Yes (Hospitalization)
  Sender: FDA-Public Use
  Company Number: FR-GENENTECH-283135

PATIENT
  Sex: Female

DRUGS (3)
  1. RITUXIMAB [Suspect]
     Indication: CHRONIC LYMPHOCYTIC LEUKAEMIA
     Dosage: 785 MG, QD
     Route: 042
     Dates: start: 20080929, end: 20080929
  2. CYCLOPHOSPHAMIDE [Suspect]
     Indication: NEOPLASM MALIGNANT
     Dosage: 1179 MG, QD
     Route: 002
     Dates: start: 20080929, end: 20081001
  3. FLUDARABINE PHOSPHATE [Suspect]
     Indication: CHRONIC LYMPHOCYTIC LEUKAEMIA
     Dosage: 180 MG, QD
     Route: 002
     Dates: start: 20080929, end: 20081001

REACTIONS (1)
  - FEBRILE BONE MARROW APLASIA [None]
